FAERS Safety Report 22949971 (Version 2)
Quarter: 2025Q4

REPORT INFORMATION
  Report Type: Spontaneous
  Country: BR (occurrence: BR)
  Receive Date: 20230915
  Receipt Date: 20251203
  Transmission Date: 20260118
  Serious: Yes (Death)
  Sender: NOVARTIS
  Company Number: BR-002147023-NVSC2023BR200283

PATIENT
  Age: 83 Year
  Sex: Male

DRUGS (1)
  1. ELTROMBOPAG OLAMINE [Suspect]
     Active Substance: ELTROMBOPAG OLAMINE
     Indication: Product used for unknown indication
     Dosage: UNK
     Route: 065

REACTIONS (1)
  - Death [Fatal]
